FAERS Safety Report 8170000-7 (Version None)
Quarter: 2012Q1

REPORT INFORMATION
  Report Type: 
  Country: None (occurrence: None)
  Receive Date: 20120228
  Receipt Date: 20120215
  Transmission Date: 20120608
  Serious: Yes (Other)
  Sender: FDA-Public Use
  Company Number: US-ELI_LILLY_AND_COMPANY-US201112002511

PATIENT
  Sex: Male
  Weight: 78.685 kg

DRUGS (2)
  1. HUMATROPE [Suspect]
     Dosage: 2.8 MG, QD
     Dates: start: 20111207
  2. HUMATROPE [Suspect]
     Indication: GROWTH HORMONE DEFICIENCY
     Dosage: 3.3 MG, QD
     Route: 058
     Dates: start: 20070601, end: 20110919

REACTIONS (2)
  - VIRAL INFECTION [None]
  - LANGERHANS' CELL HISTIOCYTOSIS [None]
